FAERS Safety Report 4814305-3 (Version None)
Quarter: 2005Q4

REPORT INFORMATION
  Report Type: 
  Country: None (occurrence: None)
  Receive Date: 20051028
  Receipt Date: 20050802
  Transmission Date: 20060501
  Serious: No
  Sender: FDA-Public Use
  Company Number: US-GLAXOSMITHKLINE-A0568629A

PATIENT
  Age: 78 Year
  Sex: Female

DRUGS (3)
  1. ADVAIR DISKUS 100/50 [Suspect]
     Indication: BRONCHOPNEUMONIA
     Dosage: 1PUFF TWICE PER DAY
     Route: 055
  2. MESTINON [Concomitant]
  3. LIPITOR [Concomitant]

REACTIONS (4)
  - FUNGAL INFECTION [None]
  - HEART RATE IRREGULAR [None]
  - PRURITUS [None]
  - YAWNING [None]
